FAERS Safety Report 9523305 (Version 6)
Quarter: 2015Q3

REPORT INFORMATION
  Report Type: Report from Study
  Country: CA (occurrence: CA)
  Receive Date: 20130913
  Receipt Date: 20150911
  Transmission Date: 20151125
  Serious: Yes (Other)
  Sender: FDA-Public Use
  Company Number: CA-ROCHE-1265945

PATIENT
  Age: 60 Year
  Sex: Female
  Weight: 74.8 kg

DRUGS (14)
  1. IBUPROFEN. [Concomitant]
     Active Substance: IBUPROFEN
  2. PREDNISONE. [Concomitant]
     Active Substance: PREDNISONE
     Route: 065
  3. ACTEMRA [Suspect]
     Active Substance: TOCILIZUMAB
     Route: 042
     Dates: start: 20121031, end: 20121031
  4. PREVACID [Concomitant]
     Active Substance: LANSOPRAZOLE
  5. RITUXAN [Suspect]
     Active Substance: RITUXIMAB
     Route: 042
     Dates: start: 20131002
  6. RESTASIS [Concomitant]
     Active Substance: CYCLOSPORINE
  7. PREDNISONE. [Concomitant]
     Active Substance: PREDNISONE
     Route: 065
  8. ACTEMRA [Suspect]
     Active Substance: TOCILIZUMAB
     Indication: RHEUMATOID ARTHRITIS
     Route: 042
     Dates: start: 20120816
  9. FOLIC ACID. [Concomitant]
     Active Substance: FOLIC ACID
  10. MELOXICAM. [Suspect]
     Active Substance: MELOXICAM
     Indication: PRODUCT USED FOR UNKNOWN INDICATION
     Route: 065
  11. LEVOTHYROXINE. [Concomitant]
     Active Substance: LEVOTHYROXINE
  12. RITUXAN [Suspect]
     Active Substance: RITUXIMAB
     Indication: RHEUMATOID ARTHRITIS
     Dosage: LAST DOSE OF RITUXIMAB WAS ON 25/JAN/2013.
     Route: 042
     Dates: start: 20130111
  13. METHOTREXATE [Concomitant]
     Active Substance: METHOTREXATE
  14. STATEX (CANADA) [Concomitant]

REACTIONS (14)
  - Ear discomfort [Recovered/Resolved]
  - Gastric disorder [Unknown]
  - Upper respiratory tract congestion [Recovered/Resolved]
  - Nerve compression [Not Recovered/Not Resolved]
  - Carpal tunnel syndrome [Not Recovered/Not Resolved]
  - Peripheral nerve injury [Not Recovered/Not Resolved]
  - Injection site bruising [Recovered/Resolved]
  - Paraesthesia [Recovered/Resolved]
  - Rheumatoid arthritis [Not Recovered/Not Resolved]
  - Abdominal discomfort [Unknown]
  - Oropharyngeal pain [Recovered/Resolved]
  - Urinary tract infection [Unknown]
  - Ear congestion [Unknown]
  - Injection site swelling [Recovered/Resolved]

NARRATIVE: CASE EVENT DATE: 201212
